FAERS Safety Report 17547721 (Version 2)
Quarter: 2020Q2

REPORT INFORMATION
  Report Type: Spontaneous
  Country: DE (occurrence: DE)
  Receive Date: 20200317
  Receipt Date: 20200402
  Transmission Date: 20200713
  Serious: Yes (Other)
  Sender: FDA-Public Use
  Company Number: DE-ASTRAZENECA-2020SE36142

PATIENT
  Sex: Female
  Weight: 72 kg

DRUGS (3)
  1. FASENRA [Suspect]
     Active Substance: BENRALIZUMAB
     Indication: ASTHMA
     Dosage: UNKNOWN DOSE, EVERY 2 MONTHS (THIRD INJECTION)
     Route: 058
     Dates: start: 20200110
  2. FASENRA [Suspect]
     Active Substance: BENRALIZUMAB
     Indication: ASTHMA
     Dosage: UNKNOWN DOSE, EVERY 2 MONTHS (SECOND INJECTION)
     Route: 058
     Dates: start: 201911
  3. FASENRA [Suspect]
     Active Substance: BENRALIZUMAB
     Indication: ASTHMA
     Dosage: UNKNOWN DOSE, EVERY 2 MONTHS (FIRST INJECTION, AUGUST OR SEPTEMBER 2019)
     Route: 058
     Dates: start: 2019

REACTIONS (4)
  - Cough [Not Recovered/Not Resolved]
  - Pneumonia [Unknown]
  - Off label use [Unknown]
  - Drug ineffective [Recovered/Resolved]
